FAERS Safety Report 16778635 (Version 1)
Quarter: 2019Q3

REPORT INFORMATION
  Report Type: Report from Study
  Country: None (occurrence: JP)
  Receive Date: 20190906
  Receipt Date: 20190906
  Transmission Date: 20191005
  Serious: Yes (Hospitalization)
  Sender: FDA-Public Use
  Company Number: JP-ABBVIE-18S-087-2543415-00

PATIENT
  Age: 63 Year
  Sex: Female
  Weight: 40 kg

DRUGS (7)
  1. ATORVASTATIN CALCIUM HYDRATE [Concomitant]
     Active Substance: ATORVASTATIN CALCIUM
     Indication: PRODUCT USED FOR UNKNOWN INDICATION
     Route: 048
  2. ROTIGOTINE [Concomitant]
     Active Substance: ROTIGOTINE
     Indication: PARKINSON^S DISEASE
     Route: 062
  3. DUODOPA [Suspect]
     Active Substance: CARBIDOPA\LEVODOPA
     Indication: PARKINSON^S DISEASE
     Dosage: MD: 1 ML, CD: 2.2 ML/HR ? 16 HRS, ED: 0.6 ML/UNIT ? 1 TIME
     Route: 050
     Dates: start: 20180727, end: 20190729
  4. ROTIGOTINE [Concomitant]
     Active Substance: ROTIGOTINE
     Route: 062
  5. DUODOPA [Suspect]
     Active Substance: CARBIDOPA\LEVODOPA
     Dosage: MD: 1.7 ML, CD: 1.8 ML/HR ? 16 HRS, ED: 0.8 ML/UNIT ? 2
     Route: 050
     Dates: start: 20190729
  6. ZOLPIDEM TARTRATE. [Concomitant]
     Active Substance: ZOLPIDEM TARTRATE
     Indication: PRODUCT USED FOR UNKNOWN INDICATION
     Route: 048
  7. CLOSTRIDIUM BUTYRICUM [Concomitant]
     Active Substance: CLOSTRIDIUM BUTYRICUM SPORES STRAIN M-55
     Indication: PRODUCT USED FOR UNKNOWN INDICATION
     Route: 048
     Dates: start: 20190620

REACTIONS (5)
  - Abdominal abscess [Recovered/Resolved]
  - Dyskinesia [Recovering/Resolving]
  - Stoma site inflammation [Recovered/Resolved]
  - Malaise [Recovering/Resolving]
  - Chronic gastritis [Recovering/Resolving]

NARRATIVE: CASE EVENT DATE: 20180727
